FAERS Safety Report 21281218 (Version 1)
Quarter: 2022Q3

REPORT INFORMATION
  Report Type: Other
  Country: GB (occurrence: GB)
  Receive Date: 20220901
  Receipt Date: 20220901
  Transmission Date: 20221027
  Serious: Yes (Other)
  Sender: FDA-Public Use
  Company Number: None

PATIENT

DRUGS (2)
  1. MONTELUKAST SODIUM [Suspect]
     Active Substance: MONTELUKAST SODIUM
     Indication: Asthma
     Dosage: 1 MILLIGRAM (FORMULATION: TABLET)
     Route: 048
     Dates: start: 20020812, end: 20220818
  2. PREDSOL [PREDNISOLONE SODIUM PHOSPHATE] [Concomitant]
     Indication: Asthma
     Dosage: UNK
     Route: 065

REACTIONS (5)
  - Symphysiotomy [Not Recovered/Not Resolved]
  - Panic attack [Not Recovered/Not Resolved]
  - Morbid thoughts [Unknown]
  - Throat tightness [Unknown]
  - Stress [Unknown]

NARRATIVE: CASE EVENT DATE: 20220812
